FAERS Safety Report 21760436 (Version 1)
Quarter: 2022Q4

REPORT INFORMATION
  Report Type: Spontaneous
  Country: JP (occurrence: None)
  Receive Date: 20221221
  Receipt Date: 20221221
  Transmission Date: 20230113
  Serious: Yes (Hospitalization)
  Sender: FDA-Public Use
  Company Number: 2022A408490

PATIENT
  Age: 41 Year
  Sex: Female
  Weight: 65 kg

DRUGS (6)
  1. TAGRISSO [Suspect]
     Active Substance: OSIMERTINIB
     Indication: Non-small cell lung cancer
     Route: 048
     Dates: start: 20221014, end: 20221014
  2. TAGRISSO [Suspect]
     Active Substance: OSIMERTINIB
     Indication: Non-small cell lung cancer
     Route: 048
     Dates: start: 20221015, end: 20221027
  3. DECADRON [Concomitant]
     Active Substance: DEXAMETHASONE
     Dosage: DOSE UNKNOWN
     Route: 048
     Dates: start: 20221014, end: 20221027
  4. FAMOTIDINE [Concomitant]
     Active Substance: FAMOTIDINE
     Dosage: DOSE UNKNOWN
     Route: 048
     Dates: start: 20221014
  5. SODIUM FERROUS CITRATE [Concomitant]
     Active Substance: SODIUM FERROUS CITRATE
     Dosage: DOSE UNKNOWN
     Route: 048
     Dates: start: 20221014
  6. DIENOGEST [Concomitant]
     Active Substance: DIENOGEST
     Dosage: DOSE UNKNOWN
     Route: 048
     Dates: start: 20221014

REACTIONS (2)
  - Cellulitis [Not Recovered/Not Resolved]
  - Genital haemorrhage [Unknown]

NARRATIVE: CASE EVENT DATE: 20221014
